FAERS Safety Report 4323952-7 (Version None)
Quarter: 2004Q1

REPORT INFORMATION
  Report Type: 
  Country: None (occurrence: None)
  Receive Date: 20040326
  Receipt Date: 20031118
  Transmission Date: 20041129
  Serious: No
  Sender: FDA-Public Use
  Company Number: US-GLAXOSMITHKLINE-A0440231A

PATIENT
  Sex: Male

DRUGS (8)
  1. ADVAIR DISKUS 100/50 [Suspect]
     Dosage: 1PUFF TWICE PER DAY
     Route: 055
     Dates: start: 20010401
  2. CELEBREX [Concomitant]
  3. TRICOR [Concomitant]
  4. PREVACID [Concomitant]
  5. FLOMAX [Concomitant]
  6. COMBIVENT [Concomitant]
  7. PREDNISONE [Concomitant]
  8. DIURETIC [Concomitant]

REACTIONS (2)
  - DYSPNOEA EXACERBATED [None]
  - PHARMACEUTICAL PRODUCT COMPLAINT [None]
